FAERS Safety Report 17709870 (Version 1)
Quarter: 2020Q2

REPORT INFORMATION
  Report Type: Spontaneous
  Country: US (occurrence: US)
  Receive Date: 20200427
  Receipt Date: 20200427
  Transmission Date: 20200714
  Serious: Yes (Hospitalization)
  Sender: FDA-Public Use
  Company Number: US-TEVA-2020-US-1228026

PATIENT
  Age: 25 Year
  Sex: Male

DRUGS (1)
  1. TESTOSTERONE. [Suspect]
     Active Substance: TESTOSTERONE
     Indication: MEDICAL ANABOLIC THERAPY
     Route: 030

REACTIONS (4)
  - Acute myocardial infarction [Recovering/Resolving]
  - Drug abuse [Unknown]
  - Renal embolism [Unknown]
  - Renal infarct [Unknown]
